FAERS Safety Report 24261787 (Version 1)
Quarter: 2024Q3

REPORT INFORMATION
  Report Type: Spontaneous
  Country: US (occurrence: US)
  Receive Date: 20240829
  Receipt Date: 20240829
  Transmission Date: 20241017
  Serious: No
  Sender: ENDO
  Company Number: US-ENDO USA, INC.-2024-002513

PATIENT
  Sex: Female

DRUGS (3)
  1. VARENICLINE [Suspect]
     Active Substance: VARENICLINE
     Indication: Smoking cessation therapy
     Dosage: 1 MILLIGRAM, BID
     Route: 065
  2. VARENICLINE [Suspect]
     Active Substance: VARENICLINE
     Dosage: 0.5 MILLIGRAM, BID
     Route: 065
  3. VARENICLINE [Suspect]
     Active Substance: VARENICLINE
     Dosage: 0.5 MILLIGRAM, BID
     Route: 065

REACTIONS (2)
  - Nausea [Recovered/Resolved]
  - Intentional product use issue [Unknown]
